FAERS Safety Report 4513651-0 (Version None)
Quarter: 2004Q4

REPORT INFORMATION
  Report Type: 
  Country: None (occurrence: None)
  Receive Date: 20041130
  Receipt Date: 20040819
  Transmission Date: 20050328
  Serious: No
  Sender: FDA-Public Use
  Company Number: US-GLAXOSMITHKLINE-A0522793A

PATIENT
  Age: 58 Year
  Sex: Female
  Weight: 102.3 kg

DRUGS (9)
  1. WELLBUTRIN [Suspect]
     Indication: ANXIETY
     Dosage: 150MG PER DAY
     Route: 048
     Dates: start: 20040301
  2. METFORMIN HCL [Concomitant]
  3. ACTOS [Concomitant]
  4. ZYRTEC [Concomitant]
  5. LIPITOR [Concomitant]
  6. L-THYROXINE [Concomitant]
  7. ESTRADIOL [Concomitant]
  8. SINGULAIR [Concomitant]
  9. CORTISONE [Concomitant]

REACTIONS (3)
  - DRUG INEFFECTIVE [None]
  - PHARMACEUTICAL PRODUCT COMPLAINT [None]
  - STOOL ANALYSIS ABNORMAL [None]
